FAERS Safety Report 5503549-3 (Version None)
Quarter: 2007Q4

REPORT INFORMATION
  Report Type: 
  Country: None (occurrence: None)
  Receive Date: 20071029
  Receipt Date: 20071018
  Transmission Date: 20080405
  Serious: Yes (Disabling, Other)
  Sender: FDA-Public Use
  Company Number: OSCN-NO-0710L-0385

PATIENT
  Age: 51 Year
  Sex: Female

DRUGS (1)
  1. OMNISCAN [Suspect]
     Indication: DRUG USE FOR UNKNOWN INDICATION
     Dosage: 0.32 MMOL/KG, SINGLE DOSE, I.A.
     Route: 014
     Dates: start: 20060124, end: 20060124

REACTIONS (2)
  - NEPHROGENIC SYSTEMIC FIBROSIS [None]
  - VASCULITIS [None]
